FAERS Safety Report 11927708 (Version 2)
Quarter: 2016Q1

REPORT INFORMATION
  Report Type: Report from Study
  Country: CA (occurrence: CA)
  Receive Date: 20160119
  Receipt Date: 20160205
  Transmission Date: 20160526
  Serious: Yes (Hospitalization, Other)
  Sender: FDA-Public Use
  Company Number: CA-BIOGEN-2016BI00171925

PATIENT
  Age: 13 Year
  Sex: Female

DRUGS (1)
  1. TYSABRI [Suspect]
     Active Substance: NATALIZUMAB
     Indication: MULTIPLE SCLEROSIS
     Route: 042
     Dates: start: 20150824

REACTIONS (8)
  - Paraesthesia [Not Recovered/Not Resolved]
  - Hypoaesthesia [Recovered/Resolved]
  - Musculoskeletal disorder [Recovered/Resolved]
  - Muscular weakness [Recovered/Resolved]
  - Spinal pain [Not Recovered/Not Resolved]
  - Back pain [Not Recovered/Not Resolved]
  - Drug administered to patient of inappropriate age [Unknown]
  - Depressed mood [Not Recovered/Not Resolved]

NARRATIVE: CASE EVENT DATE: 20150824
